FAERS Safety Report 5909913-2 (Version None)
Quarter: 2008Q4

REPORT INFORMATION
  Report Type: 
  Country: None (occurrence: None)
  Receive Date: 20081003
  Receipt Date: 20081003
  Transmission Date: 20090506
  Serious: Yes (Disabling)
  Sender: FDA-Public Use
  Company Number: None

PATIENT
  Age: 7 Year
  Sex: Male
  Weight: 40.3701 kg

DRUGS (2)
  1. SINGULAIR [Suspect]
     Indication: MULTIPLE ALLERGIES
     Dosage: 1 AT NIGHT DAILY  DAILY
     Dates: start: 20070101, end: 20071229
  2. SINGULAIR [Suspect]
     Indication: MULTIPLE ALLERGIES
     Dosage: 1 AT NIGHT DAILY  DAILY
     Dates: start: 20080101, end: 20080501

REACTIONS (1)
  - EXCESSIVE EYE BLINKING [None]
